FAERS Safety Report 4860624-4 (Version None)
Quarter: 2005Q4

REPORT INFORMATION
  Report Type: 
  Country: None (occurrence: None)
  Receive Date: 20051216
  Receipt Date: 20051129
  Transmission Date: 20060501
  Serious: Yes (Disabling, Other)
  Sender: FDA-Public Use
  Company Number: 200511817BCC

PATIENT
  Sex: Male
  Weight: 127.0072 kg

DRUGS (1)
  1. ALEVE [Suspect]
     Dosage: ORAL
     Route: 048
     Dates: end: 20040101

REACTIONS (7)
  - BUTTOCK PAIN [None]
  - DIFFICULTY IN WALKING [None]
  - HYPERTENSION [None]
  - MYOCARDIAL INFARCTION [None]
  - PAIN IN EXTREMITY [None]
  - PERIPHERAL VASCULAR DISORDER [None]
  - RASH MACULAR [None]
